FAERS Safety Report 9507475 (Version 1)
Quarter: 2013Q3

REPORT INFORMATION
  Report Type: Spontaneous
  Country: US (occurrence: None)
  Receive Date: 20130906
  Receipt Date: 20130906
  Transmission Date: 20140515
  Serious: No
  Sender: FDA-Public Use
  Company Number: None

PATIENT
  Age: 36 Year
  Sex: Female
  Weight: 51.71 kg

DRUGS (1)
  1. TRI SPRINTEC BARR LABS [Suspect]
     Indication: CONTRACEPTION
     Dosage: 28 DAY PACK  ONCE DAILY  TAKEN BY MOUTH
     Route: 048
     Dates: start: 20130825, end: 20130905

REACTIONS (1)
  - Metrorrhagia [None]
